FAERS Safety Report 20830135 (Version 1)
Quarter: 2022Q2

REPORT INFORMATION
  Report Type: Spontaneous
  Country: US (occurrence: US)
  Receive Date: 20220514
  Receipt Date: 20220514
  Transmission Date: 20220721
  Serious: Yes (Hospitalization, Other)
  Sender: FDA-Public Use
  Company Number: US-AMGEN-USASP2022079296

PATIENT
  Age: 58 Year
  Sex: Male

DRUGS (7)
  1. FILGRASTIM [Suspect]
     Active Substance: FILGRASTIM
     Indication: Prophylaxis
     Route: 065
  2. POSACONAZOLE [Concomitant]
     Active Substance: POSACONAZOLE
     Indication: Prophylaxis
     Route: 042
  3. AMPHOTERICIN B [Concomitant]
     Active Substance: AMPHOTERICIN B
  4. IDARUBICIN [Concomitant]
     Active Substance: IDARUBICIN
  5. CYTARABINE [Concomitant]
     Active Substance: CYTARABINE
  6. CLADRIBINE [Concomitant]
     Active Substance: CLADRIBINE
  7. MITOXANTRONE [Concomitant]
     Active Substance: MITOXANTRONE HYDROCHLORIDE

REACTIONS (14)
  - Neutropenia [Unknown]
  - Staphylococcal bacteraemia [Unknown]
  - Thrombocytopenia [Unknown]
  - Tachycardia [Unknown]
  - Mental status changes [Unknown]
  - Fasciitis [Unknown]
  - Urinary incontinence [Unknown]
  - Vascular device infection [Unknown]
  - Streptococcus test positive [Unknown]
  - Enterococcus test positive [Unknown]
  - Penile necrosis [Unknown]
  - Skin necrosis [Unknown]
  - Hydrocele [Unknown]
  - Cutaneous mucormycosis [Recovered/Resolved]
